FAERS Safety Report 20772939 (Version 3)
Quarter: 2022Q3

REPORT INFORMATION
  Report Type: Spontaneous
  Country: US (occurrence: US)
  Receive Date: 20220502
  Receipt Date: 20220802
  Transmission Date: 20221027
  Serious: No
  Sender: FDA-Public Use
  Company Number: US-BRISTOL-MYERS SQUIBB COMPANY-2022-026757

PATIENT
  Age: 77 Year
  Sex: Female

DRUGS (1)
  1. REVLIMID [Suspect]
     Active Substance: LENALIDOMIDE
     Indication: Plasma cell myeloma
     Dosage: FREQ: TAKE 1 CAPSULE BY MOUTH EVERY DAY ON DAYS 1-21, THEN OFF FOR 7 DAYS FOR A 28 DAY CYCLE
     Route: 048
     Dates: start: 20200318

REACTIONS (3)
  - Skin discolouration [Unknown]
  - Diarrhoea [Unknown]
  - Blood iron decreased [Unknown]
